FAERS Safety Report 4377496-7 (Version None)
Quarter: 2004Q2

REPORT INFORMATION
  Report Type: 
  Country: None (occurrence: None)
  Receive Date: 20040602
  Receipt Date: 20031001
  Transmission Date: 20050107
  Serious: Yes (Other)
  Sender: FDA-Public Use
  Company Number: NSADSS2001028309

PATIENT
  Age: 55 Year
  Sex: Female
  Weight: 120.2032 kg

DRUGS (7)
  1. PROPULSID [Suspect]
     Indication: DRUG USE FOR UNKNOWN INDICATION
     Route: 048
     Dates: start: 19960116
  2. PROPULSID [Suspect]
     Indication: FLATULENCE
     Dosage: 10 MG, 4 IN 1 DAY, ORAL
     Route: 048
     Dates: start: 19960410
  3. FUROSEMIDE [Concomitant]
  4. ETODOLAC [Concomitant]
  5. CAPTOPRIL [Concomitant]
  6. LORATADINE [Concomitant]
  7. CONJUGATED ESTROGENS [Concomitant]

REACTIONS (4)
  - CHEST PAIN [None]
  - DRUG INEFFECTIVE [None]
  - ELECTROCARDIOGRAM QT PROLONGED [None]
  - URINARY INCONTINENCE [None]
